FAERS Safety Report 14039988 (Version 2)
Quarter: 2018Q2

REPORT INFORMATION
  Report Type: Report from Study
  Country: None (occurrence: IT)
  Receive Date: 20171004
  Receipt Date: 20180607
  Transmission Date: 20180711
  Serious: Yes (Life-Threatening, Other)
  Sender: FDA-Public Use
  Company Number: IT-BAUSCH-BL-2017-028365

PATIENT
  Age: 59 Year
  Sex: Male

DRUGS (2)
  1. RIBAVIRIN. [Suspect]
     Active Substance: RIBAVIRIN
     Indication: CHRONIC HEPATITIS C
     Route: 065
  2. LEDIPASVIR W/SOFOSBUVIR [Suspect]
     Active Substance: LEDIPASVIR\SOFOSBUVIR
     Indication: CHRONIC HEPATITIS C
     Route: 065

REACTIONS (2)
  - Hepatocellular carcinoma [Unknown]
  - Drug ineffective [Unknown]
